FAERS Safety Report 5671930-8 (Version None)
Quarter: 2008Q1

REPORT INFORMATION
  Report Type: 
  Country: None (occurrence: None)
  Receive Date: 20080319
  Receipt Date: 20080211
  Transmission Date: 20080703
  Serious: No
  Sender: FDA-Public Use
  Company Number: US-BAYER-200813612NA

PATIENT
  Sex: Male

DRUGS (1)
  1. ULTRAVIST (PHARMACY BULK) [Suspect]

REACTIONS (1)
  - PRURITUS [None]
